FAERS Safety Report 18082416 (Version 2)
Quarter: 2020Q3

REPORT INFORMATION
  Report Type: Report from Study
  Country: None (occurrence: CA)
  Receive Date: 20200729
  Receipt Date: 20200807
  Transmission Date: 20201103
  Serious: No
  Sender: FDA-Public Use
  Company Number: CA-ABBVIE-20K-028-3499902-00

PATIENT
  Sex: Female

DRUGS (4)
  1. RINVOQ [Suspect]
     Active Substance: UPADACITINIB
     Indication: RHEUMATOID ARTHRITIS
  2. LYRICA [Suspect]
     Active Substance: PREGABALIN
     Indication: PAIN IN EXTREMITY
     Route: 065
     Dates: start: 202005
  3. RINVOQ [Suspect]
     Active Substance: UPADACITINIB
     Indication: RHEUMATOID ARTHRITIS
     Route: 048
     Dates: start: 20200416
  4. CLINDAMYCIN. [Suspect]
     Active Substance: CLINDAMYCIN
     Indication: TOOTH INFECTION
     Route: 065
     Dates: start: 202007, end: 2020

REACTIONS (12)
  - Joint swelling [Unknown]
  - Vomiting [Unknown]
  - Dental leakage [Unknown]
  - Candida infection [Recovered/Resolved]
  - Pain in extremity [Unknown]
  - Skin discolouration [Unknown]
  - Hypoaesthesia [Unknown]
  - Insomnia [Unknown]
  - Tooth infection [Unknown]
  - Gingival abscess [Not Recovered/Not Resolved]
  - Tooth disorder [Unknown]
  - Gastric disorder [Unknown]

NARRATIVE: CASE EVENT DATE: 2020
